FAERS Safety Report 10061996 (Version 3)
Quarter: 2014Q2

REPORT INFORMATION
  Report Type: Spontaneous
  Country: GB (occurrence: None)
  Receive Date: 20140403
  Receipt Date: 20140410
  Transmission Date: 20141212
  Serious: Yes (Hospitalization)
  Sender: FDA-Public Use
  Company Number: AUR-APL-2014-03995

PATIENT
  Age: 75 Year
  Sex: Female

DRUGS (11)
  1. RAMIPRIL [Suspect]
     Indication: CARDIAC FAILURE
     Dosage: 1 IN 1 D
     Route: 048
     Dates: end: 20140217
  2. SPIRONOLACTONE [Suspect]
     Indication: CARDIAC FAILURE
     Dosage: 1 IN 1 D
     Route: 048
     Dates: end: 20140217
  3. ATENOLOL (ATENOLOL) [Concomitant]
  4. ATORVASTATIN (ATORVASTATIN) [Concomitant]
  5. CANDESARTAN (CANDESARTAN) [Concomitant]
  6. CLOPIDOGREL (CLOPIDOGREL) [Concomitant]
  7. FERROUS FUMARATE (FERROUS FUMARATE) [Concomitant]
  8. GLYCERYL TRINITRATE (GLYCERYL TRINITRATE) [Concomitant]
  9. NICORANDIL (NICORANDIL) [Concomitant]
  10. SALBUTAMOL (SALBUTAMOL) [Concomitant]
  11. TIOTROPIUM BROMIDE (TIOTROPIUM BROMIDE) [Concomitant]

REACTIONS (3)
  - Hypercalcaemia [None]
  - Hyperkalaemia [None]
  - Renal impairment [None]
